FAERS Safety Report 11771434 (Version 1)
Quarter: 2015Q4

REPORT INFORMATION
  Report Type: Spontaneous
  Country: NL (occurrence: NL)
  Receive Date: 20151124
  Receipt Date: 20151124
  Transmission Date: 20160304
  Serious: Yes (Other)
  Sender: FDA-Public Use
  Company Number: NL-CIPLA LTD.-2015NL08761

PATIENT

DRUGS (2)
  1. I-META-IODOBENZYLGUANIDINE (131I-MIBG) [Suspect]
     Active Substance: IOBENGUANE I-131
     Indication: NEUROBLASTOMA
     Dosage: 7.4 GIGABECQUEREL (GBQ)/200 MILLICURIE (MCI) AT INTERVAL OF 4 WEEKS
     Route: 065
  2. TOPOTECAN [Suspect]
     Active Substance: TOPOTECAN\TOPOTECAN HYDROCHLORIDE
     Indication: NEUROBLASTOMA
     Dosage: 0.7 MG/M2 I.V. 1-HOUR INFUSION DAILY FOR 5 DAYS AT INTERVAL OF 4 WEEKS

REACTIONS (1)
  - Disease progression [Unknown]
